FAERS Safety Report 19611645 (Version 2)
Quarter: 2021Q3

REPORT INFORMATION
  Report Type: Report from Study
  Country: BR (occurrence: BR)
  Receive Date: 20210727
  Receipt Date: 20210820
  Transmission Date: 20211014
  Serious: Yes (Hospitalization, Other)
  Sender: FDA-Public Use
  Company Number: BR-AMGEN-BRASL2021094575

PATIENT
  Age: 54 Year
  Sex: Female

DRUGS (5)
  1. VECTIBIX [Suspect]
     Active Substance: PANITUMUMAB
     Indication: GASTROINTESTINAL CANCER METASTATIC
     Dosage: UNK UNK, Q2WK (EVERY 15 DAYS)
     Route: 042
     Dates: start: 202101
  2. TRAMAL [Concomitant]
     Active Substance: TRAMADOL
     Dosage: UNK
  3. DIAZEPAM. [Concomitant]
     Active Substance: DIAZEPAM
     Indication: PAIN
     Dosage: UNK
  4. DIPIRONAX [Concomitant]
     Dosage: UNK
  5. LIXIANA [Concomitant]
     Active Substance: EDOXABAN TOSYLATE

REACTIONS (11)
  - Oral pain [Recovering/Resolving]
  - Diarrhoea [Recovering/Resolving]
  - Chills [Recovering/Resolving]
  - Skin irritation [Recovered/Resolved]
  - Immunodeficiency [Unknown]
  - Oral contusion [Unknown]
  - Pruritus [Recovering/Resolving]
  - Asthenia [Recovering/Resolving]
  - Rash pustular [Recovered/Resolved]
  - Alopecia [Recovering/Resolving]
  - Depressed mood [Unknown]

NARRATIVE: CASE EVENT DATE: 2021
